FAERS Safety Report 10080854 (Version 1)
Quarter: 2014Q2

REPORT INFORMATION
  Report Type: Spontaneous
  Country: US (occurrence: US)
  Receive Date: 20140416
  Receipt Date: 20140416
  Transmission Date: 20141212
  Serious: Yes (Other)
  Sender: FDA-Public Use
  Company Number: PHEH2014US007284

PATIENT
  Sex: 0

DRUGS (5)
  1. CLOZARIL [Suspect]
     Dosage: UNK UKN, UNK
  2. ZYPREXA [Suspect]
     Dosage: UNK UKN, UNK
  3. ABILIFY [Suspect]
     Dosage: UNK UKN, UNK
  4. REMERON [Suspect]
     Dosage: UNK UKN, UNK
  5. LUNESTA [Suspect]
     Dosage: UNK UKN, UNK

REACTIONS (11)
  - Injury [Unknown]
  - Traumatic lung injury [Unknown]
  - Tooth loss [Unknown]
  - Emotional distress [Unknown]
  - Pain [Unknown]
  - Anxiety [Unknown]
  - Abdominal pain upper [Unknown]
  - Lip disorder [Unknown]
  - Cough [Unknown]
  - Toothache [Unknown]
  - Screaming [Unknown]
